FAERS Safety Report 20883146 (Version 1)
Quarter: 2022Q2

REPORT INFORMATION
  Report Type: Spontaneous
  Country: IE (occurrence: IE)
  Receive Date: 20220527
  Receipt Date: 20220527
  Transmission Date: 20220720
  Serious: Yes (Other)
  Sender: FDA-Public Use
  Company Number: IE-UCBSA-2022029646

PATIENT
  Age: 21 Year

DRUGS (3)
  1. KEPPRA [Suspect]
     Active Substance: LEVETIRACETAM
     Indication: Partial seizures
     Dosage: 750 MILLIGRAM, 2X/DAY (BID)
  2. KEPPRA [Suspect]
     Active Substance: LEVETIRACETAM
     Indication: Generalised tonic-clonic seizure
     Dosage: 500 MILLIGRAM, 2X/DAY (BID)
  3. KEPPRA [Suspect]
     Active Substance: LEVETIRACETAM
     Dosage: 250MG AND 500MG

REACTIONS (4)
  - Seizure [Not Recovered/Not Resolved]
  - Partial seizures [Not Recovered/Not Resolved]
  - Emotional disorder [Recovering/Resolving]
  - Product use issue [Unknown]
